FAERS Safety Report 7260499-2 (Version None)
Quarter: 2011Q1

REPORT INFORMATION
  Report Type: 
  Country: None (occurrence: None)
  Receive Date: 20110130
  Receipt Date: 20101227
  Transmission Date: 20110831
  Serious: No
  Sender: FDA-Public Use
  Company Number: US-ABBOTT-10P-163-0686754-00

PATIENT
  Age: 41 Year
  Sex: Male

DRUGS (3)
  1. UNKNOWN MEDICATION [Concomitant]
     Indication: PRODUCT USED FOR UNKNOWN INDICATION
     Route: 061
  2. HUMIRA [Suspect]
     Indication: PSORIASIS
     Dates: start: 20100601, end: 20101101
  3. SINGULAIR [Concomitant]
     Indication: ASTHMA
     Dosage: DAILY
     Route: 048

REACTIONS (2)
  - INJECTION SITE URTICARIA [None]
  - BRONCHITIS [None]
